FAERS Safety Report 5653048-3 (Version None)
Quarter: 2008Q1

REPORT INFORMATION
  Report Type: 
  Country: None (occurrence: None)
  Receive Date: 20080306
  Receipt Date: 20080226
  Transmission Date: 20080703
  Serious: Yes (Other)
  Sender: FDA-Public Use
  Company Number: DE-WYE-H02934808

PATIENT
  Sex: Female

DRUGS (1)
  1. CORDAREX [Suspect]
     Dosage: UNKNOWN
     Dates: start: 20060301

REACTIONS (1)
  - PNEUMONIA PRIMARY ATYPICAL [None]
